FAERS Safety Report 6985043-6 (Version None)
Quarter: 2010Q3

REPORT INFORMATION
  Report Type: 
  Country: None (occurrence: None)
  Receive Date: 20100915
  Receipt Date: 20100903
  Transmission Date: 20110219
  Serious: Yes (Hospitalization)
  Sender: FDA-Public Use
  Company Number: PHHY2010FR58611

PATIENT
  Age: 63 Year
  Sex: Male

DRUGS (6)
  1. VALSARTAN  AND HYDROCHLOROTHIAZIDE [Suspect]
     Indication: HYPERTENSION
     Dosage: TABLET (160/12.5 MG), QD
     Route: 048
     Dates: end: 20100611
  2. FUROSEMIDE [Concomitant]
     Indication: HYPERTENSION
  3. RILMENIDINE [Concomitant]
     Indication: HYPERTENSION
  4. METOPROLOL TARTRATE [Concomitant]
     Indication: HYPERTENSION
  5. RADIOTHERAPY [Concomitant]
     Indication: PROSTATE CANCER
  6. CHEMOTHERAPEUTICS NOS [Concomitant]
     Indication: ACUTE MYELOMONOCYTIC LEUKAEMIA

REACTIONS (3)
  - BLOOD ALBUMIN INCREASED [None]
  - BLOOD PHOSPHORUS INCREASED [None]
  - HYPERCALCAEMIA [None]
